FAERS Safety Report 9702631 (Version 1)
Quarter: 2013Q4

REPORT INFORMATION
  Report Type: Spontaneous
  Country: US (occurrence: None)
  Receive Date: 20131120
  Receipt Date: 20131120
  Transmission Date: 20140711
  Serious: Yes (Hospitalization)
  Sender: FDA-Public Use
  Company Number: 2013P1020930

PATIENT
  Age: 66 Year
  Sex: Male

DRUGS (2)
  1. SODIUM POLYSTYRENE SULFONATE [Suspect]
     Indication: RENAL FAILURE CHRONIC
  2. AST-120 [Suspect]
     Indication: RENAL FAILURE CHRONIC

REACTIONS (6)
  - Hypokalaemia [None]
  - Myopathy [None]
  - Constipation [None]
  - Abdominal pain lower [None]
  - Intestinal ischaemia [None]
  - Peritoneal disorder [None]
